FAERS Safety Report 13777671 (Version 3)
Quarter: 2017Q3

REPORT INFORMATION
  Report Type: Spontaneous
  Country: IE (occurrence: IE)
  Receive Date: 20170721
  Receipt Date: 20170811
  Transmission Date: 20171127
  Serious: Yes (Hospitalization, Other)
  Sender: FDA-Public Use
  Company Number: IE-AMGEN-IRLSP2017049983

PATIENT
  Age: 47 Year
  Sex: Female

DRUGS (5)
  1. VITAMIN D [Concomitant]
     Active Substance: CHOLECALCIFEROL
  2. PROLIA [Suspect]
     Active Substance: DENOSUMAB
     Indication: OSTEOPOROSIS POSTMENOPAUSAL
     Dosage: 60 MG, Q6MO
     Route: 058
  3. L GLUTAMINE [Concomitant]
     Active Substance: GLUTAMINE
  4. CALCIUM [Concomitant]
     Active Substance: CALCIUM
  5. MOVICOL [Concomitant]
     Active Substance: POLYETHYLENE GLYCOL 3350\POTASSIUM CHLORIDE\SODIUM BICARBONATE\SODIUM CHLORIDE

REACTIONS (46)
  - Adverse drug reaction [Unknown]
  - Tremor [Unknown]
  - Vitreous floaters [Unknown]
  - Tinnitus [Unknown]
  - Urticaria [Unknown]
  - Drug hypersensitivity [Unknown]
  - Visual impairment [Unknown]
  - Blood calcium increased [Unknown]
  - Hypoaesthesia [Unknown]
  - Sneezing [Unknown]
  - Yawning [Unknown]
  - Neck pain [Unknown]
  - Back pain [Unknown]
  - Hyperparathyroidism [Unknown]
  - Muscle atrophy [Unknown]
  - Lactose intolerance [Unknown]
  - Throat irritation [Unknown]
  - Abdominal pain [Unknown]
  - Throat tightness [Unknown]
  - Feeling abnormal [Unknown]
  - Frequent bowel movements [Unknown]
  - Arthralgia [Unknown]
  - Weight decreased [Unknown]
  - Dyspepsia [Unknown]
  - Mean cell haemoglobin increased [Unknown]
  - Dysgeusia [Unknown]
  - Cough [Unknown]
  - Pain [Unknown]
  - Dizziness [Unknown]
  - Disturbance in attention [Unknown]
  - Memory impairment [Unknown]
  - Asthenia [Unknown]
  - Fatigue [Unknown]
  - Avulsion fracture [Unknown]
  - Toothache [Unknown]
  - Pruritus [Unknown]
  - Chest pain [Unknown]
  - Dysphagia [Unknown]
  - Tooth pulp haemorrhage [Unknown]
  - Rash [Unknown]
  - Diarrhoea [Unknown]
  - Dyspnoea [Unknown]
  - Malaise [Unknown]
  - Paraesthesia oral [Unknown]
  - Paraesthesia [Unknown]
  - Neuralgia [Unknown]

NARRATIVE: CASE EVENT DATE: 20160426
